FAERS Safety Report 13667241 (Version 6)
Quarter: 2019Q3

REPORT INFORMATION
  Report Type: Report from Study
  Country: CA (occurrence: CA)
  Receive Date: 20170619
  Receipt Date: 20190821
  Transmission Date: 20191004
  Serious: Yes (Other)
  Sender: FDA-Public Use
  Company Number: CA-ROCHE-1215658

PATIENT
  Age: 65 Year
  Sex: Male
  Weight: 75.7 kg

DRUGS (10)
  1. SYNTHROID [Concomitant]
     Active Substance: LEVOTHYROXINE SODIUM
  2. BENADRYL [Concomitant]
     Active Substance: DIPHENHYDRAMINE HYDROCHLORIDE
     Indication: PREMEDICATION
     Route: 048
     Dates: start: 20161118
  3. TYLENOL [Concomitant]
     Active Substance: ACETAMINOPHEN
     Indication: PREMEDICATION
     Route: 048
     Dates: start: 20161118
  4. METHOTREXATE. [Concomitant]
     Active Substance: METHOTREXATE
  5. SALAZOPYRIN [Concomitant]
     Active Substance: SULFASALAZINE
  6. RITUXAN [Suspect]
     Active Substance: RITUXIMAB
     Indication: RHEUMATOID ARTHRITIS
     Dosage: RECEIVED RITUXIMAB INFUSION ON 18/JUL/2014, 03/FEB/2015?MOST RECENT RITUXIMAB INFUSION ON 18/NOV/201
     Route: 042
     Dates: start: 20120525
  7. ROCALTROL [Concomitant]
     Active Substance: CALCITRIOL
  8. SOLU-MEDROL [Concomitant]
     Active Substance: METHYLPREDNISOLONE SODIUM SUCCINATE
     Indication: PREMEDICATION
     Route: 042
     Dates: start: 20161118
  9. CELEBREX [Suspect]
     Active Substance: CELECOXIB
     Indication: PRODUCT USED FOR UNKNOWN INDICATION
     Route: 065
  10. FOLIC ACID. [Concomitant]
     Active Substance: FOLIC ACID

REACTIONS (17)
  - Arthritis [Unknown]
  - Metastases to lung [Unknown]
  - Bronchitis [Recovered/Resolved]
  - Injection site extravasation [Unknown]
  - Arthropathy [Recovered/Resolved]
  - Musculoskeletal pain [Not Recovered/Not Resolved]
  - Joint swelling [Not Recovered/Not Resolved]
  - Bronchitis [Not Recovered/Not Resolved]
  - Blood pressure systolic abnormal [Unknown]
  - Lung neoplasm malignant [Unknown]
  - Joint swelling [Unknown]
  - Haemorrhagic erosive gastritis [Unknown]
  - Blood pressure systolic increased [Unknown]
  - C-reactive protein increased [Unknown]
  - Drug ineffective [Unknown]
  - Arthralgia [Not Recovered/Not Resolved]
  - Blood pressure fluctuation [Unknown]

NARRATIVE: CASE EVENT DATE: 201206
